FAERS Safety Report 4786888-3 (Version None)
Quarter: 2005Q4

REPORT INFORMATION
  Report Type: 
  Country: None (occurrence: None)
  Receive Date: 20051004
  Receipt Date: 20050509
  Transmission Date: 20060501
  Serious: Yes (Death, Hospitalization)
  Sender: FDA-Public Use
  Company Number: 2005CG00878

PATIENT
  Age: 75 Year
  Sex: Male

DRUGS (11)
  1. CRESTOR [Suspect]
     Route: 048
     Dates: start: 20050125, end: 20050306
  2. ACTOS [Suspect]
     Route: 048
     Dates: start: 20050125, end: 20050306
  3. ALLOPURINOL [Suspect]
     Route: 048
  4. MEDIATENSYL [Suspect]
     Route: 048
  5. FUROSEMIDE [Suspect]
     Route: 048
  6. AMAREL [Suspect]
     Route: 048
     Dates: end: 20050311
  7. AMAREL [Suspect]
     Route: 048
     Dates: start: 20050315, end: 20050315
  8. KARDEGIC [Concomitant]
  9. ZOFENIL [Concomitant]
  10. LEGALON [Concomitant]
  11. CIRKAN [Concomitant]

REACTIONS (6)
  - ANURIA [None]
  - HEPATIC NEOPLASM MALIGNANT [None]
  - HEPATITIS [None]
  - METABOLIC ACIDOSIS [None]
  - PROTHROMBIN LEVEL INCREASED [None]
  - RENAL FAILURE [None]
